FAERS Safety Report 6901775-X (Version None)
Quarter: 2010Q3

REPORT INFORMATION
  Report Type: 
  Country: None (occurrence: None)
  Receive Date: 20100803
  Receipt Date: 20100726
  Transmission Date: 20110219
  Serious: Yes (Other)
  Sender: FDA-Public Use
  Company Number: JP-ELI_LILLY_AND_COMPANY-JP201003006974

PATIENT
  Age: 42 Year
  Sex: Male

DRUGS (2)
  1. GEMZAR [Suspect]
     Indication: PANCREATIC CARCINOMA
     Dosage: 1000 MG/M2, UNK
     Route: 042
  2. H2-RECEPTOR ANTAGONISTS [Concomitant]
     Route: 048

REACTIONS (2)
  - ANASTOMOTIC ULCER PERFORATION [None]
  - PERITONITIS [None]
